FAERS Safety Report 25848566 (Version 1)
Quarter: 2025Q3

REPORT INFORMATION
  Report Type: Spontaneous
  Country: TW (occurrence: TW)
  Receive Date: 20250925
  Receipt Date: 20250925
  Transmission Date: 20251020
  Serious: Yes (Other)
  Sender: PFIZER
  Company Number: TW-PFIZER INC-PV202500114607

PATIENT
  Age: 51 Year
  Sex: Male
  Weight: 69.6 kg

DRUGS (17)
  1. PIPERACILLIN SODIUM\TAZOBACTAM SODIUM [Suspect]
     Active Substance: PIPERACILLIN SODIUM\TAZOBACTAM SODIUM
     Indication: Abdominal infection
     Dosage: 2G/250 MG, 4X/DAY
     Route: 042
     Dates: start: 20241230, end: 20250112
  2. PIPERACILLIN SODIUM\TAZOBACTAM SODIUM [Suspect]
     Active Substance: PIPERACILLIN SODIUM\TAZOBACTAM SODIUM
     Indication: Sepsis
     Dosage: 3.375 G, 4X/DAY
     Route: 042
     Dates: start: 20250119, end: 20250120
  3. OXYCODONE HYDROCHLORIDE [Suspect]
     Active Substance: OXYCODONE HYDROCHLORIDE
     Indication: Abdominal pain
     Route: 048
     Dates: start: 20250118, end: 20250120
  4. LASIX [Concomitant]
     Active Substance: FUROSEMIDE
     Indication: Acute kidney injury
     Route: 042
     Dates: start: 20250116, end: 20250117
  5. LASIX [Concomitant]
     Active Substance: FUROSEMIDE
     Route: 042
     Dates: start: 20250116, end: 20250116
  6. LASIX [Concomitant]
     Active Substance: FUROSEMIDE
     Route: 042
     Dates: start: 20250116, end: 20250123
  7. LASIX [Concomitant]
     Active Substance: FUROSEMIDE
     Dosage: 1.0 AMP, 2X/DAY
     Route: 042
     Dates: start: 20250117, end: 20250120
  8. MORPHINE HYDROCHLORIDE [Concomitant]
     Active Substance: MORPHINE HYDROCHLORIDE
     Indication: Abdominal pain
     Route: 030
     Dates: start: 20250116, end: 20250117
  9. MORPHINE HYDROCHLORIDE [Concomitant]
     Active Substance: MORPHINE HYDROCHLORIDE
     Route: 042
     Dates: start: 20250117, end: 20250117
  10. MORPHINE HYDROCHLORIDE [Concomitant]
     Active Substance: MORPHINE HYDROCHLORIDE
     Route: 042
     Dates: start: 20250117, end: 20250118
  11. MORPHINE HYDROCHLORIDE [Concomitant]
     Active Substance: MORPHINE HYDROCHLORIDE
     Route: 042
     Dates: start: 20250118, end: 20250126
  12. TAMSULOSIN HYDROCHLORIDE [Concomitant]
     Active Substance: TAMSULOSIN HYDROCHLORIDE
     Indication: Benign prostatic hyperplasia
     Dosage: 1 DF, 1X/DAY
     Route: 048
     Dates: start: 20250116, end: 20250126
  13. PLASBUMIN-25 LOW ALBUMIN [Concomitant]
     Indication: Blood albumin abnormal
     Dosage: 1.0 BOT, 2X/DAY
     Route: 041
     Dates: start: 20250117, end: 20250120
  14. IMOVANE [Concomitant]
     Active Substance: ZOPICLONE
     Indication: Insomnia
     Dosage: 1 DF, 1X/DAY
     Route: 048
     Dates: start: 20250118, end: 20250120
  15. VALDOXAN [Concomitant]
     Active Substance: AGOMELATINE
     Indication: Depression
     Dosage: 1 DF, 1X/DAY
     Route: 048
     Dates: start: 20250118, end: 20250120
  16. SEROQUEL [Concomitant]
     Active Substance: QUETIAPINE FUMARATE
     Indication: Insomnia
     Dosage: 1 DF, 1X/DAY
     Route: 048
     Dates: start: 20250118, end: 20250120
  17. DESLORATADINE [Concomitant]
     Active Substance: DESLORATADINE
     Indication: Pruritus
     Route: 048
     Dates: start: 20250119, end: 20250120

REACTIONS (9)
  - Hypersensitivity [Unknown]
  - Chills [Unknown]
  - Tremor [Unknown]
  - Rash [Unknown]
  - Papule [Unknown]
  - Macule [Unknown]
  - Pruritus [Unknown]
  - C-reactive protein increased [Unknown]
  - Procalcitonin decreased [Unknown]

NARRATIVE: CASE EVENT DATE: 20250110
